FAERS Safety Report 25936764 (Version 1)
Quarter: 2025Q4

REPORT INFORMATION
  Report Type: Spontaneous
  Country: US (occurrence: US)
  Receive Date: 20251017
  Receipt Date: 20251017
  Transmission Date: 20260118
  Serious: No
  Sender: YILING PHARMACEUTICAL LTD
  Company Number: US-YILING-2025YPSPO0020

PATIENT
  Sex: Female

DRUGS (1)
  1. FELODIPINE [Suspect]
     Active Substance: FELODIPINE
     Indication: Product used for unknown indication
     Route: 065

REACTIONS (1)
  - Adverse reaction [Unknown]
